FAERS Safety Report 4495638-X (Version None)
Quarter: 2004Q4

REPORT INFORMATION
  Report Type: 
  Country: None (occurrence: None)
  Receive Date: 20041103
  Receipt Date: 20041021
  Transmission Date: 20050328
  Serious: Yes (Death)
  Sender: FDA-Public Use
  Company Number: 2004081893

PATIENT
  Age: 36 Year

DRUGS (4)
  1. GEODON [Suspect]
     Indication: ILL-DEFINED DISORDER
  2. GEODON [Suspect]
     Indication: ILL-DEFINED DISORDER
     Dosage: INTRAMUSCULAR
     Route: 030
  3. OLANZAPINE [Concomitant]
  4. ALL THERAPEUTIC PRODUCTS (ALL OTHER  THERAPEUTIC PRODUCTS) [Concomitant]

REACTIONS (2)
  - AGGRESSION [None]
  - INTENTIONAL SELF-INJURY [None]
